FAERS Safety Report 20412012 (Version 1)
Quarter: 2022Q1

REPORT INFORMATION
  Report Type: Spontaneous
  Country: US (occurrence: US)
  Receive Date: 20220201
  Receipt Date: 20220201
  Transmission Date: 20220423
  Serious: No
  Sender: FDA-Public Use
  Company Number: US-ABBVIE-21K-163-3959199-00

PATIENT
  Sex: Male

DRUGS (2)
  1. LUPRON [Suspect]
     Active Substance: LEUPROLIDE ACETATE
     Indication: Product used for unknown indication
     Route: 065
  2. XTANDI [Suspect]
     Active Substance: ENZALUTAMIDE
     Indication: Prostate cancer
     Route: 048
     Dates: start: 20190330

REACTIONS (6)
  - Poor quality sleep [Unknown]
  - Peripheral swelling [Recovering/Resolving]
  - Night sweats [Unknown]
  - Rash pruritic [Unknown]
  - Pruritus genital [Unknown]
  - Genital rash [Unknown]
